FAERS Safety Report 7915005-3 (Version None)
Quarter: 2011Q4

REPORT INFORMATION
  Report Type: 
  Country: None (occurrence: None)
  Receive Date: 20111115
  Receipt Date: 20111115
  Transmission Date: 20120403
  Serious: Yes (Other)
  Sender: FDA-Public Use
  Company Number: ZA-PFIZER INC-2011265140

PATIENT
  Sex: Female

DRUGS (2)
  1. AMOXICILLIN [Concomitant]
     Dosage: UNK
  2. ADVIL COLD AND SINUS [Suspect]
     Dosage: 1 TABLET, TWICE DAILY(BD)
     Route: 048

REACTIONS (3)
  - FALL [None]
  - LOSS OF CONSCIOUSNESS [None]
  - HEAD INJURY [None]
